FAERS Safety Report 21471037 (Version 3)
Quarter: 2022Q4

REPORT INFORMATION
  Report Type: Spontaneous
  Country: US (occurrence: US)
  Receive Date: 20221018
  Receipt Date: 20221021
  Transmission Date: 20230112
  Serious: Yes (Death)
  Sender: FDA-Public Use
  Company Number: US-NOVARTISPH-NVSC2022US233558

PATIENT
  Sex: Male

DRUGS (1)
  1. PLUVICTO [Suspect]
     Active Substance: LUTETIUM LU-177 VIPIVOTIDE TETRAXETAN
     Indication: Hormone-refractory prostate cancer
     Dosage: 7.4 MBQ, Q6 WEEKS
     Route: 042

REACTIONS (2)
  - Hepatotoxicity [Fatal]
  - Hepatic failure [Fatal]
